FAERS Safety Report 4575767-2 (Version None)
Quarter: 2005Q1

REPORT INFORMATION
  Report Type: 
  Country: None (occurrence: None)
  Receive Date: 20050128
  Receipt Date: 20050128
  Transmission Date: 20050727
  Serious: Yes (Other)
  Sender: FDA-Public Use
  Company Number: None

PATIENT
  Age: 46 Year
  Sex: Male
  Weight: 103.6 kg

DRUGS (12)
  1. ELOXATIN [Suspect]
     Indication: COLON CANCER
     Dosage: 170 MG    EVERY MONTH    INTRAVENOU
     Route: 042
     Dates: start: 20031101, end: 20041030
  2. PROTONIX [Concomitant]
  3. KYTRIL [Concomitant]
  4. DECADRON [Concomitant]
  5. LEUCOVORIN CALCIUM [Concomitant]
  6. FLUOROURACIL [Concomitant]
  7. DIOVAN [Concomitant]
  8. TEMAZEPAM [Concomitant]
  9. COLACE [Concomitant]
  10. PERCOCET [Concomitant]
  11. ALUMINUM HYDROXIDE AND MAGNESIUM TRISILICATE [Concomitant]
  12. BENADRYL [Concomitant]

REACTIONS (4)
  - ERYTHEMA [None]
  - FLUSHING [None]
  - PRURITUS [None]
  - URTICARIA [None]
